FAERS Safety Report 14921865 (Version 1)
Quarter: 2018Q2

REPORT INFORMATION
  Report Type: Spontaneous
  Country: FR (occurrence: FR)
  Receive Date: 20180522
  Receipt Date: 20180522
  Transmission Date: 20180711
  Serious: Yes (Other)
  Sender: FDA-Public Use
  Company Number: FR-MERCK KGAA-2048209

PATIENT
  Age: 56 Year
  Sex: Female

DRUGS (1)
  1. NOVOTHYROX [Suspect]
     Active Substance: LEVOTHYROXINE SODIUM
     Indication: THYROID DISORDER
     Dates: start: 2017, end: 201708

REACTIONS (18)
  - Neck pain [None]
  - Mood altered [None]
  - Palpitations [None]
  - Negative thoughts [None]
  - Asthenia [Recovered/Resolved]
  - Fatigue [None]
  - Suicidal ideation [None]
  - Pain [None]
  - Hot flush [Recovered/Resolved]
  - Loss of personal independence in daily activities [None]
  - Social avoidant behaviour [None]
  - Dyspnoea [None]
  - Nervousness [Recovered/Resolved]
  - Arthralgia [Recovered/Resolved]
  - Impaired driving ability [None]
  - Myalgia [Recovered/Resolved]
  - Depression [None]
  - Personal relationship issue [None]

NARRATIVE: CASE EVENT DATE: 201704
